FAERS Safety Report 4472831-3 (Version None)
Quarter: 2004Q4

REPORT INFORMATION
  Report Type: 
  Country: None (occurrence: None)
  Receive Date: 20041008
  Receipt Date: 20040924
  Transmission Date: 20050328
  Serious: Yes (Hospitalization, Disabling)
  Sender: FDA-Public Use
  Company Number: 2004-0007532

PATIENT
  Age: 45 Year
  Sex: Male
  Weight: 65 kg

DRUGS (5)
  1. VIREAD [Suspect]
     Indication: HIV INFECTION
     Dosage: 300 MG, 1 IN 1 D, ORAL
     Route: 048
     Dates: start: 20040311, end: 20040920
  2. LAMIVUDINE [Concomitant]
  3. NEVIRAPINE [Concomitant]
  4. OMEPRAZOLE [Concomitant]
  5. CISAPRIDE [Concomitant]

REACTIONS (2)
  - BLINDNESS UNILATERAL [None]
  - CATARACT [None]
